FAERS Safety Report 8130144-2 (Version None)
Quarter: 2012Q1

REPORT INFORMATION
  Report Type: 
  Country: None (occurrence: None)
  Receive Date: 20120210
  Receipt Date: 20120206
  Transmission Date: 20120608
  Serious: Yes (Death)
  Sender: FDA-Public Use
  Company Number: US-GILEAD-2012-0049556

PATIENT
  Sex: Female

DRUGS (2)
  1. LETAIRIS [Suspect]
     Indication: PULMONARY HYPERTENSION
     Dosage: 5 MG, UNK
     Route: 048
     Dates: start: 20050601, end: 20120107
  2. LETAIRIS [Suspect]
     Indication: SCLERODERMA

REACTIONS (2)
  - SJOGREN'S SYNDROME [None]
  - SCLERODERMA [None]
